FAERS Safety Report 11328800 (Version 1)
Quarter: 2015Q3

REPORT INFORMATION
  Report Type: Spontaneous
  Country: US (occurrence: US)
  Receive Date: 20150731
  Receipt Date: 20150731
  Transmission Date: 20151125
  Serious: No
  Sender: FDA-Public Use
  Company Number: US-009507513-1507USA007708

PATIENT
  Sex: Female
  Weight: 82 kg

DRUGS (1)
  1. ZOCOR [Suspect]
     Active Substance: SIMVASTATIN
     Indication: BLOOD CHOLESTEROL INCREASED
     Dosage: 10 MG, DAILY
     Route: 048

REACTIONS (4)
  - Muscular weakness [Recovered/Resolved]
  - Polymyalgia rheumatica [Unknown]
  - Pain in extremity [Recovered/Resolved]
  - Movement disorder [Recovered/Resolved]
